FAERS Safety Report 17495649 (Version 1)
Quarter: 2020Q1

REPORT INFORMATION
  Report Type: Spontaneous
  Country: US (occurrence: US)
  Receive Date: 20200303
  Receipt Date: 20200303
  Transmission Date: 20200409
  Serious: No
  Sender: FDA-Public Use
  Company Number: US-BIODELIVERY SCIENCES INTERNATIONAL-2020BDSI0085

PATIENT
  Age: 66 Year
  Sex: Male
  Weight: 113.5 kg

DRUGS (6)
  1. BUPRENORPHINE. [Suspect]
     Active Substance: BUPRENORPHINE
     Indication: PAIN
     Route: 002
     Dates: start: 2019, end: 2019
  2. BUPRENORPHINE. [Suspect]
     Active Substance: BUPRENORPHINE
     Route: 002
     Dates: start: 2019, end: 20200127
  3. BUPRENORPHINE. [Suspect]
     Active Substance: BUPRENORPHINE
     Route: 002
     Dates: start: 20200130
  4. BUPRENORPHINE. [Suspect]
     Active Substance: BUPRENORPHINE
     Route: 002
     Dates: start: 2019, end: 2019
  5. BUPRENORPHINE. [Suspect]
     Active Substance: BUPRENORPHINE
     Dosage: 1 FILM OF 900 MCG; AFTER 6 TO 8 HOURS 1/2 FILM OF 900 MCG; IF PAIN PERSISTS REMAINING 1/2 FILM.
     Route: 002
     Dates: start: 20200128, end: 20200129
  6. OXYCODONE [Concomitant]
     Active Substance: OXYCODONE
     Indication: PRODUCT USED FOR UNKNOWN INDICATION
     Route: 048

REACTIONS (7)
  - Therapeutic response decreased [Not Recovered/Not Resolved]
  - Off label use [Recovered/Resolved]
  - Product adhesion issue [Unknown]
  - Product solubility abnormal [Unknown]
  - Oral administration complication [Unknown]
  - Wrong technique in product usage process [Recovered/Resolved]
  - Product physical consistency issue [Unknown]

NARRATIVE: CASE EVENT DATE: 2019
